FAERS Safety Report 5264407-5 (Version None)
Quarter: 2007Q2

REPORT INFORMATION
  Report Type: 
  Country: None (occurrence: None)
  Receive Date: 20070309
  Receipt Date: 20070228
  Transmission Date: 20071010
  Serious: Yes (Hospitalization, Disabling, Other)
  Sender: FDA-Public Use
  Company Number: 011165

PATIENT
  Age: 35 Year
  Sex: Female

DRUGS (48)
  1. ZEBETA [Suspect]
  2. ADVAIR HFA [Suspect]
     Dosage: INHALANT
     Route: 055
  3. ALLEGRA-D 12 HOUR [Suspect]
  4. ALPRAZOLAM [Suspect]
     Indication: STRESS
     Dosage: 3 MG, QD
     Dates: start: 19850101
  5. AMLODIPINE [Suspect]
     Indication: HYPERTENSION
     Dosage: 5 MG, QD
  6. AMOXICILLIN + CLAVULANATE POTASSIUM [Suspect]
     Dosage: 170 MG, QD
  7. ARTHROTEC [Suspect]
     Dosage: 150 MG, QD
  8. ATENOLOL [Suspect]
     Indication: HYPERTENSION
     Dosage: 50 MG, QD
  9. AVELOX [Suspect]
  10. BACTRIM DS [Suspect]
  11. BUPROPION HCL [Suspect]
     Dosage: 300 MG, QD
  12. CANDESARTAN CILEXETIL [Suspect]
  13. CARISOPRODOL [Suspect]
     Dosage: ORAL
     Route: 048
  14. CEFAZOLIN SODIUM [Suspect]
     Dosage: 500 MG, QD, ORAL
     Route: 048
  15. CELECOXIB [Suspect]
     Indication: PAIN
     Dosage: 200 MG, QD
  16. CEPHALEXIN [Suspect]
     Dosage: 1500 MG, QD, ORAL
     Route: 048
  17. CETIRIZINE HCL [Suspect]
     Indication: HYPERSENSITIVITY
  18. PSEUDOEPHEDRINE HCL/CHLORPHENIRAMINE MALEATE [Suspect]
  19. CLONAZEPAM [Suspect]
     Indication: MUSCLE SPASMS
  20. CLOTRIMAZOLE [Suspect]
  21. CODICLEAR(GUAIFENESIN, HYDROCODONE BITARTRATE) [Suspect]
  22. DEXAMETHASONE 0.5MG TAB [Suspect]
  23. DIAZEPAM [Suspect]
  24. DURATUSS(GUAIFENESIN, PSEUDOEPHEDRINE HYDROCHLORIDE) [Suspect]
  25. ECONAZOLE NITRATE [Suspect]
  26. ENDAL-HD(PHENYLEPHRINE HYDROCHLORIDE, CHLORPHENAMINE MALEATE, HYDROCOD [Suspect]
  27. ERYTHROMYCIN [Suspect]
     Dosage: 500 MG, QD
  28. ESOMEPRAZOLE MAGNESIUM [Suspect]
  29. FLUCONAZOLE [Suspect]
  30. FLUOXETINE HYDROCHLORIDE [Suspect]
  31. FLUTICASONE PROPIONATE [Suspect]
  32. GABAPENTIN [Suspect]
     Indication: MUSCLE SPASMS
  33. KETOCONAZOLE [Suspect]
     Dosage: 200 MG, QD
  34. LANSOPRAZOLE [Suspect]
  35. LASIX [Suspect]
     Indication: HYPERTENSION
     Dosage: 40 MG, QD
  36. LATANOPROST [Suspect]
  37. LISINOPRIL [Suspect]
     Indication: HYPERTENSION
  38. LOMOTIL [Suspect]
  39. LORCET-HD [Suspect]
     Dosage: ORAL
     Route: 048
  40. LORTAB [Suspect]
  41. LOSARTAN POTASSIUM [Suspect]
     Indication: HYPERTENSION
  42. LOTRISONE [Suspect]
  43. MELOXICAM [Suspect]
  44. METAXALONE [Suspect]
  45. METOPROLOL TARTRATE [Suspect]
     Indication: HYPERTENSION
  46. MOMETASONE FUROATE [Suspect]
  47. MUPIROCIN [Suspect]
     Dosage: TOPICAL
     Route: 061
  48. OLMESARTAN MEDOXOMIL [Suspect]
     Dosage: 150 MG, QD

REACTIONS (21)
  - ARTHRITIS [None]
  - ARTHROPOD BITE [None]
  - BRONCHITIS [None]
  - BRONCHOSPASM [None]
  - CHOLELITHIASIS [None]
  - CONDITION AGGRAVATED [None]
  - DEEP VEIN THROMBOSIS [None]
  - DIZZINESS [None]
  - FEELING ABNORMAL [None]
  - GLAUCOMA [None]
  - NEUROPATHY PERIPHERAL [None]
  - OSTEOARTHRITIS [None]
  - OSTEOLYSIS [None]
  - PURPURA SENILE [None]
  - RENAL FAILURE [None]
  - RESORPTION BONE INCREASED [None]
  - TARSAL TUNNEL SYNDROME [None]
  - THROMBOPHLEBITIS SUPERFICIAL [None]
  - VASCULITIS [None]
  - VERTIGO POSITIONAL [None]
  - VESTIBULAR DISORDER [None]
